FAERS Safety Report 4601038-1 (Version None)
Quarter: 2005Q1

REPORT INFORMATION
  Report Type: 
  Country: None (occurrence: None)
  Receive Date: 20050307
  Receipt Date: 20050307
  Transmission Date: 20050727
  Serious: Yes (Other)
  Sender: FDA-Public Use
  Company Number: None

PATIENT
  Sex: Female
  Weight: 63.5036 kg

DRUGS (2)
  1. SINGULAIR [Suspect]
     Indication: ASTHMA
     Dosage: 1       EVERY NIGHT   ORAL
     Route: 048
     Dates: start: 20040712, end: 20050210
  2. SINGULAIR [Suspect]
     Indication: SEASONAL ALLERGY
     Dosage: 1       EVERY NIGHT   ORAL
     Route: 048
     Dates: start: 20040712, end: 20050210

REACTIONS (1)
  - ALOPECIA [None]
